FAERS Safety Report 5412872-2 (Version None)
Quarter: 2007Q3

REPORT INFORMATION
  Report Type: 
  Country: None (occurrence: None)
  Receive Date: 20070713
  Receipt Date: 20070514
  Transmission Date: 20080115
  Serious: No
  Sender: FDA-Public Use
  Company Number: 2007SP001776

PATIENT
  Age: 74 Year
  Sex: Male

DRUGS (7)
  1. LUNESTA [Suspect]
     Indication: INSOMNIA
     Dosage: 2 MG; PRN; ORAL;  1 MG; PRN; ORAL
     Route: 048
     Dates: start: 20060101
  2. LUNESTA [Suspect]
     Indication: INSOMNIA
     Dosage: 2 MG; PRN; ORAL;  1 MG; PRN; ORAL
     Route: 048
     Dates: start: 20060101
  3. METHOTREXATE [Concomitant]
  4. FOLIC ACIDD [Concomitant]
  5. LEVOTHYROXINE SODIUM [Concomitant]
  6. VITAMIN CAP [Concomitant]
  7. XANAX [Concomitant]

REACTIONS (2)
  - AGEUSIA [None]
  - DYSGEUSIA [None]
